FAERS Safety Report 7420356-5 (Version None)
Quarter: 2011Q2

REPORT INFORMATION
  Report Type: 
  Country: None (occurrence: None)
  Receive Date: 20110418
  Receipt Date: 20110406
  Transmission Date: 20111010
  Serious: No
  Sender: FDA-Public Use
  Company Number: US-BIOGENIDEC-2011BI013224

PATIENT
  Sex: Female

DRUGS (3)
  1. AVONEX [Suspect]
     Route: 030
     Dates: start: 19960101
  2. AVONEX [Suspect]
     Indication: MULTIPLE SCLEROSIS
     Route: 030
  3. AVONEX [Suspect]
     Route: 030

REACTIONS (14)
  - PAIN IN EXTREMITY [None]
  - FATIGUE [None]
  - HYPERSENSITIVITY [None]
  - DIZZINESS [None]
  - DRUG DOSE OMISSION [None]
  - MOBILITY DECREASED [None]
  - FALL [None]
  - OSTEOARTHRITIS [None]
  - BALANCE DISORDER [None]
  - DEPRESSED MOOD [None]
  - MALAISE [None]
  - ANKLE FRACTURE [None]
  - BACK PAIN [None]
  - LOWER LIMB FRACTURE [None]
